FAERS Safety Report 8830093 (Version 1)
Quarter: 2012Q4

REPORT INFORMATION
  Report Type: Spontaneous
  Country: PL (occurrence: None)
  Receive Date: 20121004
  Receipt Date: 20121004
  Transmission Date: 20130627
  Serious: Yes (Other)
  Sender: FDA-Public Use
  Company Number: FK201202808

PATIENT
  Age: 10 Year
  Sex: Male

DRUGS (4)
  1. METHYLPREDNISOLONE [Suspect]
     Indication: ASTHMA
     Dosage: (not otherwise specified)
     Route: 042
  2. FLUTICASONE {FLUTICASONE) [Concomitant]
  3. SALMETEROL {SALMETEROL) [Concomitant]
  4. SALBUTAMOL (SALBUTAMOL) [Concomitant]

REACTIONS (2)
  - Anaphylactic reaction [None]
  - Type I hypersensitivity [None]
